FAERS Safety Report 5866517-8 (Version None)
Quarter: 2008Q3

REPORT INFORMATION
  Report Type: 
  Country: None (occurrence: None)
  Receive Date: 20080902
  Receipt Date: 20080902
  Transmission Date: 20090109
  Serious: Yes (Hospitalization)
  Sender: FDA-Public Use
  Company Number: PHEH1996US09916

PATIENT
  Sex: Male
  Weight: 114 kg

DRUGS (5)
  1. SANDIMMUNE [Suspect]
     Route: 048
     Dates: start: 19960428
  2. IMURAN [Suspect]
     Dosage: UNSPECIFIED
     Route: 065
  3. PREDNISONE TAB [Suspect]
     Dosage: UNSPECIFIED
     Route: 065
  4. DIURETICS [Suspect]
     Dosage: UNSPECIFIED
     Route: 065
  5. ANTIBIOTICS [Suspect]
     Dosage: UNSPECIFIED
     Route: 042

REACTIONS (4)
  - LUNG INFILTRATION [None]
  - PNEUMONIA [None]
  - RENAL FAILURE ACUTE [None]
  - RESPIRATORY DISTRESS [None]
